FAERS Safety Report 19193864 (Version 1)
Quarter: 2021Q2

REPORT INFORMATION
  Report Type: Spontaneous
  Country: US (occurrence: US)
  Receive Date: 20210428
  Receipt Date: 20210428
  Transmission Date: 20210717
  Serious: No
  Sender: FDA-Public Use
  Company Number: None

PATIENT
  Age: 20 Year
  Sex: Male
  Weight: 48.1 kg

DRUGS (8)
  1. SERTRALINE [Concomitant]
     Active Substance: SERTRALINE HYDROCHLORIDE
  2. LAMOTRIGINE. [Concomitant]
     Active Substance: LAMOTRIGINE
  3. CHLORPROMAZINE. [Concomitant]
     Active Substance: CHLORPROMAZINE
  4. CYPROHEPTADINE. [Concomitant]
     Active Substance: CYPROHEPTADINE
  5. STELARA [Suspect]
     Active Substance: USTEKINUMAB
     Indication: COLITIS ULCERATIVE
     Dosage: ?          OTHER FREQUENCY:EVERY 4 WEEKS;?
     Route: 058
     Dates: start: 20210305
  6. DEPAKOTE ER [Concomitant]
     Active Substance: DIVALPROEX SODIUM
  7. GUANFACINE. [Concomitant]
     Active Substance: GUANFACINE
  8. NAYZILAM [Concomitant]
     Active Substance: MIDAZOLAM

REACTIONS (4)
  - Dysarthria [None]
  - Staring [None]
  - Dysphemia [None]
  - Posterior reversible encephalopathy syndrome [None]

NARRATIVE: CASE EVENT DATE: 20210329
